FAERS Safety Report 22287499 (Version 1)
Quarter: 2023Q2

REPORT INFORMATION
  Report Type: Spontaneous
  Country: DE (occurrence: DE)
  Receive Date: 20230505
  Receipt Date: 20230505
  Transmission Date: 20230722
  Serious: Yes (Other)
  Sender: FDA-Public Use
  Company Number: DE-BFARM-23003197

PATIENT
  Sex: Male
  Weight: 81 kg

DRUGS (1)
  1. AMIODARONE [Suspect]
     Active Substance: AMIODARONE
     Indication: Atrial fibrillation
     Dosage: 200 MILLIGRAM, ONCE A DAY (INTAKE FOR ABOUT 10 YEARS)
     Route: 048

REACTIONS (4)
  - Meniere^s disease [Not Recovered/Not Resolved]
  - Gait disturbance [Not Recovered/Not Resolved]
  - Dizziness [Not Recovered/Not Resolved]
  - Ataxia [Not Recovered/Not Resolved]
